FAERS Safety Report 9386559 (Version 1)
Quarter: 2013Q3

REPORT INFORMATION
  Report Type: Spontaneous
  Country: US (occurrence: None)
  Receive Date: 20130703
  Receipt Date: 20130703
  Transmission Date: 20140515
  Serious: Yes (Death)
  Sender: FDA-Public Use
  Company Number: None

PATIENT
  Age: 83 Year
  Sex: Female

DRUGS (5)
  1. LETAIRIS 10MG GILEAD [Suspect]
     Indication: PULMONARY ARTERIAL HYPERTENSION
     Dosage: 10MG DAILY ORALLY
     Route: 048
     Dates: start: 201302, end: 201305
  2. SILDENIFIL [Concomitant]
  3. CLONAZEPAM [Concomitant]
  4. ALBUTEROL [Concomitant]
  5. FUROSEMIDE [Concomitant]

REACTIONS (3)
  - Dyspnoea [None]
  - Oxygen consumption increased [None]
  - Cardiac disorder [None]
